FAERS Safety Report 14326655 (Version 3)
Quarter: 2018Q3

REPORT INFORMATION
  Report Type: Spontaneous
  Country: US (occurrence: US)
  Receive Date: 20171227
  Receipt Date: 20180825
  Transmission Date: 20181010
  Serious: No
  Sender: FDA-Public Use
  Company Number: US-TEVA-2017-US-829053

PATIENT
  Sex: Male

DRUGS (7)
  1. CEPHALEXIN. [Concomitant]
     Active Substance: CEPHALEXIN
     Route: 065
  2. BLOX?E [Concomitant]
     Route: 065
  3. FLUOCINONIDE. [Concomitant]
     Active Substance: FLUOCINONIDE
     Route: 065
  4. CLOBETASOL [Concomitant]
     Active Substance: CLOBETASOL
     Route: 065
  5. EQ HAIR REGROWTH [Suspect]
     Active Substance: MINOXIDIL
     Indication: HAIR GROWTH ABNORMAL
     Dates: start: 2004, end: 2016
  6. PROPANOL [Concomitant]
     Active Substance: PROPRANOLOL HYDROCHLORIDE
     Route: 065
  7. KETOCONAZOLE. [Concomitant]
     Active Substance: KETOCONAZOLE
     Route: 065

REACTIONS (9)
  - Rash erythematous [Not Recovered/Not Resolved]
  - Infection [Unknown]
  - Erythema [Not Recovered/Not Resolved]
  - Pain of skin [Not Recovered/Not Resolved]
  - Alopecia [Unknown]
  - Acarodermatitis [Unknown]
  - Psoriasis [Unknown]
  - Laceration [Not Recovered/Not Resolved]
  - Trichodynia [Unknown]
